FAERS Safety Report 9900255 (Version 2)
Quarter: 2015Q4

REPORT INFORMATION
  Report Type: Report from Study
  Country: US (occurrence: US)
  Receive Date: 20140215
  Receipt Date: 20151021
  Transmission Date: 20160305
  Serious: Yes (Death)
  Sender: FDA-Public Use
  Company Number: US-ROCHE-1350510

PATIENT
  Sex: Male

DRUGS (4)
  1. AVASTIN [Suspect]
     Active Substance: BEVACIZUMAB
     Indication: GLIOBLASTOMA
     Dosage: DAY 1 CYCLE 2 OF AVASTIN
     Route: 042
     Dates: start: 20130719
  2. TYLENOL [Concomitant]
     Active Substance: ACETAMINOPHEN
     Dosage: GIVEN WITH THE AVASTIN INFUSION
     Route: 048
  3. AVASTIN [Suspect]
     Active Substance: BEVACIZUMAB
     Indication: BRAIN NEOPLASM MALIGNANT
     Dosage: IN 100 ML NS
     Route: 042
  4. ACETAMINOPHEN. [Concomitant]
     Active Substance: ACETAMINOPHEN
     Route: 048

REACTIONS (2)
  - Protein urine [Unknown]
  - Death [Fatal]
